FAERS Safety Report 20509426 (Version 2)
Quarter: 2022Q1

REPORT INFORMATION
  Report Type: Spontaneous
  Country: US (occurrence: US)
  Receive Date: 20220224
  Receipt Date: 20220302
  Transmission Date: 20220423
  Serious: No
  Sender: FDA-Public Use
  Company Number: US-AMGEN-USASP2022031672

PATIENT
  Age: 49 Year
  Sex: Female

DRUGS (4)
  1. VECTIBIX [Suspect]
     Active Substance: PANITUMUMAB
     Indication: Colorectal cancer metastatic
     Dosage: UNK UNK, UNK
     Route: 065
     Dates: start: 202109
  2. VECTIBIX [Suspect]
     Active Substance: PANITUMUMAB
     Indication: Colon cancer stage IV
  3. LETTER [Concomitant]
     Indication: Product used for unknown indication
     Dosage: UNK
  4. SCALP [Concomitant]
     Indication: Product used for unknown indication
     Dosage: UNK

REACTIONS (7)
  - Pustule [Unknown]
  - Eyelid skin dryness [Unknown]
  - Inflammation [Unknown]
  - Eyelid pain [Unknown]
  - Erythema [Unknown]
  - Skin reaction [Unknown]
  - Pain of skin [Unknown]

NARRATIVE: CASE EVENT DATE: 20210101
